FAERS Safety Report 15047949 (Version 10)
Quarter: 2019Q3

REPORT INFORMATION
  Report Type: Report from Study
  Country: None (occurrence: JP)
  Receive Date: 20180622
  Receipt Date: 20190926
  Transmission Date: 20191004
  Serious: Yes (Hospitalization)
  Sender: FDA-Public Use
  Company Number: JP-ABBVIE-18K-087-2396128-00

PATIENT
  Age: 80 Year
  Sex: Male
  Weight: 51.5 kg

DRUGS (2)
  1. MAVIRET [Suspect]
     Active Substance: GLECAPREVIR\PIBRENTASVIR
     Indication: CHRONIC HEPATITIS C
  2. MAVIRET [Suspect]
     Active Substance: GLECAPREVIR\PIBRENTASVIR
     Indication: HEPATIC CIRRHOSIS
     Route: 048
     Dates: start: 20180406, end: 20180528

REACTIONS (6)
  - Bile duct stone [Recovered/Resolved]
  - Cholecystitis [Recovered/Resolved]
  - Biliary dilatation [Unknown]
  - Cholangitis acute [Recovered/Resolved]
  - Jaundice [Recovered/Resolved]
  - Liver disorder [Recovered/Resolved]

NARRATIVE: CASE EVENT DATE: 20180527
